FAERS Safety Report 21991214 (Version 1)
Quarter: 2023Q1

REPORT INFORMATION
  Report Type: Spontaneous
  Country: DE (occurrence: DE)
  Receive Date: 20230214
  Receipt Date: 20230214
  Transmission Date: 20230418
  Serious: Yes (Hospitalization, Other)
  Sender: FDA-Public Use
  Company Number: None

PATIENT
  Age: 65 Year
  Sex: Female
  Weight: 65 kg

DRUGS (3)
  1. ZYPADHERA [Suspect]
     Active Substance: OLANZAPINE PAMOATE
     Indication: Schizoaffective disorder
     Dosage: 405 MG, OTHER (EVERY 14 DAYS)
     Route: 030
     Dates: start: 202202, end: 20220622
  2. ZYPADHERA [Suspect]
     Active Substance: OLANZAPINE PAMOATE
     Indication: Schizoaffective disorder
     Dosage: 405 MG, OTHER (EVERY 14 DAYS)
     Route: 030
     Dates: start: 202202, end: 20220622
  3. ZYPADHERA [Suspect]
     Active Substance: OLANZAPINE PAMOATE
     Indication: Schizoaffective disorder
     Dosage: 405 MG, OTHER (EVERY 14 DAYS)
     Route: 030
     Dates: start: 202202, end: 20220622

REACTIONS (2)
  - Abscess limb [Recovering/Resolving]
  - Septic shock [Recovering/Resolving]

NARRATIVE: CASE EVENT DATE: 20220501
